FAERS Safety Report 8128020-4 (Version None)
Quarter: 2012Q1

REPORT INFORMATION
  Report Type: 
  Country: None (occurrence: None)
  Receive Date: 20120210
  Receipt Date: 20120130
  Transmission Date: 20120608
  Serious: Yes (Hospitalization)
  Sender: FDA-Public Use
  Company Number: US-ACTELION-A-US2012-60339

PATIENT

DRUGS (18)
  1. TRACLEER [Suspect]
     Indication: PULMONARY HYPERTENSION
     Dosage: 125 MG, BID
     Route: 048
     Dates: start: 20101109
  2. TYVASO [Concomitant]
  3. ASPIRIN [Concomitant]
  4. NORCO [Concomitant]
  5. POTASSIUM CHLORIDE [Concomitant]
  6. ADVAIR DISKUS 100/50 [Concomitant]
  7. EFFIENT [Concomitant]
  8. PRILOSEC [Concomitant]
  9. PRAVASTATIN [Concomitant]
  10. TRACLEER [Suspect]
     Dosage: 62.5 MG, BID
     Route: 048
     Dates: start: 20101009, end: 20101108
  11. GLIPIZIDE [Concomitant]
  12. CALCIUM CARBONATE [Concomitant]
  13. MULTI-VITAMIN [Concomitant]
  14. LASIX [Concomitant]
  15. ALDACTONE [Concomitant]
  16. VENTOLIN [Concomitant]
  17. AZATHIOPRINE [Concomitant]
  18. DETROL LA [Concomitant]

REACTIONS (10)
  - URINARY TRACT INFECTION [None]
  - PYREXIA [None]
  - BRONCHITIS [None]
  - ESCHERICHIA TEST POSITIVE [None]
  - PNEUMONIA [None]
  - DYSPNOEA [None]
  - PLEURAL EFFUSION [None]
  - COUGH [None]
  - CARDIAC FAILURE CONGESTIVE [None]
  - PERICARDIAL EFFUSION [None]
